FAERS Safety Report 6247733-2 (Version None)
Quarter: 2009Q2

REPORT INFORMATION
  Report Type: 
  Country: None (occurrence: None)
  Receive Date: 20090626
  Receipt Date: 20090619
  Transmission Date: 20091009
  Serious: Yes (Death)
  Sender: FDA-Public Use
  Company Number: PHEH2009US05916

PATIENT
  Sex: Male

DRUGS (8)
  1. EXJADE [Suspect]
     Indication: IRON OVERLOAD
     Dosage: 500 MG, TID
     Route: 048
     Dates: start: 20080328
  2. EXJADE [Suspect]
     Dosage: 500 MG, TID
     Dates: start: 20090605, end: 20090606
  3. METOPROLOL SUCCINATE [Concomitant]
     Dosage: 25 MG, BID
     Route: 048
  4. LASIX [Concomitant]
     Route: 048
  5. K-DUR [Concomitant]
     Route: 048
  6. DILTIAZEM [Concomitant]
     Dosage: 180 MG, BID
     Route: 048
  7. METOLAZONE [Concomitant]
     Dosage: 3 TIMES WEEKLY
     Route: 048
  8. VIDAZA [Concomitant]
     Dosage: 150 MG IV INFUSION X 5 DAYS EVERY 4 WEEKS

REACTIONS (3)
  - DEATH [None]
  - DYSPNOEA [None]
  - FATIGUE [None]
